FAERS Safety Report 9254779 (Version 1)
Quarter: 2013Q2

REPORT INFORMATION
  Report Type: Spontaneous
  Country: US (occurrence: None)
  Receive Date: 20130422
  Receipt Date: 20130422
  Transmission Date: 20140414
  Serious: Yes (Hospitalization)
  Sender: FDA-Public Use
  Company Number: None

PATIENT
  Age: 64 Year
  Sex: Male
  Weight: 59.5 kg

DRUGS (1)
  1. CAPECITABINE [Suspect]
     Indication: COLORECTAL CANCER
     Dosage: 1650 MG  BID  PO
     Route: 048
     Dates: start: 20130131, end: 20130221

REACTIONS (4)
  - Asthenia [None]
  - Nausea [None]
  - Dehydration [None]
  - Vomiting [None]
